FAERS Safety Report 10275069 (Version 1)
Quarter: 2014Q3

REPORT INFORMATION
  Report Type: Spontaneous
  Country: FR (occurrence: FR)
  Receive Date: 20140703
  Receipt Date: 20140703
  Transmission Date: 20150326
  Serious: Yes (Hospitalization)
  Sender: FDA-Public Use
  Company Number: FR-ROCHE-1428768

PATIENT
  Age: 74 Year
  Sex: Male

DRUGS (2)
  1. ROCEPHINE [Suspect]
     Active Substance: CEFTRIAXONE SODIUM
     Indication: LUNG DISORDER
     Route: 041
     Dates: start: 20140315, end: 20140405
  2. PREVISCAN (FRANCE) [Interacting]
     Active Substance: FLUINDIONE
     Indication: LUNG DISORDER
     Dosage: 1/2 A DAY EVERY 2 DAYS; 3/4 A DAY EVERY 2 DAYS
     Route: 048
     Dates: end: 20140401

REACTIONS (2)
  - International normalised ratio increased [Recovered/Resolved]
  - Drug interaction [Unknown]

NARRATIVE: CASE EVENT DATE: 20140316
